FAERS Safety Report 19131960 (Version 2)
Quarter: 2021Q2

REPORT INFORMATION
  Report Type: Spontaneous
  Country: BR (occurrence: BR)
  Receive Date: 20210414
  Receipt Date: 20210416
  Transmission Date: 20210717
  Serious: Yes (Other)
  Sender: FDA-Public Use
  Company Number: BR-AMGEN-BRASP2021052507

PATIENT
  Age: 14 Year
  Sex: Male
  Weight: 37 kg

DRUGS (6)
  1. BLINCYTO [Suspect]
     Active Substance: BLINATUMOMAB
     Indication: B PRECURSOR TYPE ACUTE LEUKAEMIA
     Dosage: UNK
     Route: 065
     Dates: start: 20210127, end: 2021
  2. HYPER CVAD [Concomitant]
     Active Substance: CYCLOPHOSPHAMIDE\CYTARABINE\DEXAMETHASONE\DOXORUBICIN\METHOTREXATE\VINCRISTINE
  3. DEXAMETHASONE. [Concomitant]
     Active Substance: DEXAMETHASONE
  4. BLINCYTO [Suspect]
     Active Substance: BLINATUMOMAB
     Dosage: UNK
     Route: 065
     Dates: start: 2021, end: 20210228
  5. BORTEZOMIBE [Concomitant]
     Active Substance: BORTEZOMIB
  6. VORICONAZOLE. [Concomitant]
     Active Substance: VORICONAZOLE
     Dosage: UNK
     Dates: start: 20200908

REACTIONS (5)
  - Drug resistance [Unknown]
  - Therapy non-responder [Unknown]
  - Acute lymphocytic leukaemia recurrent [Unknown]
  - Hypertension [Unknown]
  - Cholangitis [Unknown]

NARRATIVE: CASE EVENT DATE: 2021
